FAERS Safety Report 7396774-0 (Version None)
Quarter: 2011Q1

REPORT INFORMATION
  Report Type: 
  Country: None (occurrence: None)
  Receive Date: 20110325
  Receipt Date: 20110316
  Transmission Date: 20110831
  Serious: Yes (Hospitalization, Disabling, Other)
  Sender: FDA-Public Use
  Company Number: 814820

PATIENT
  Age: 63 Year
  Sex: Male

DRUGS (3)
  1. AVASTIN [Suspect]
     Indication: LUNG ADENOCARCINOMA
     Dosage: 600 MG MILLIGRAM(S), INTRAVENOUS
     Route: 042
     Dates: start: 20101101, end: 20110111
  2. GEMCITABINE HYDROCHLORIDE [Suspect]
     Indication: LUNG ADENOCARCINOMA
     Dosage: 1200 MG/M2 MILLIGRAM(S)/SQ, METER,(1 DAY), INTRAVENOUS
     Route: 042
     Dates: start: 20101101, end: 20110110
  3. GEMCITABINE HYDROCHLORIDE [Suspect]
     Indication: LUNG ADENOCARCINOMA
     Dosage: 1200 MG/M2 MILLIGRAM(S), SQ, METER, INTRAVENOUS
     Route: 042
     Dates: start: 20101101, end: 20110110

REACTIONS (4)
  - FINGER AMPUTATION [None]
  - SKIN NECROSIS [None]
  - GANGRENE [None]
  - CYANOSIS [None]
